FAERS Safety Report 6195721-7 (Version None)
Quarter: 2009Q2

REPORT INFORMATION
  Report Type: 
  Country: None (occurrence: None)
  Receive Date: 20090520
  Receipt Date: 20090514
  Transmission Date: 20091009
  Serious: Yes (Other)
  Sender: FDA-Public Use
  Company Number: US-SP-2009-02179

PATIENT

DRUGS (5)
  1. TUBERSOL [Suspect]
     Indication: IMMUNISATION
     Route: 065
  2. TUBERSOL [Suspect]
     Route: 065
  3. TUBERSOL [Suspect]
     Route: 065
  4. TUBERSOL [Suspect]
     Route: 065
  5. TUBERSOL [Suspect]
     Route: 065

REACTIONS (2)
  - FALSE POSITIVE TUBERCULOSIS TEST [None]
  - TUBERCULOSIS SEROLOGY TEST POSITIVE [None]
